FAERS Safety Report 23224753 (Version 1)
Quarter: 2023Q4

REPORT INFORMATION
  Report Type: Spontaneous
  Country: JP (occurrence: JP)
  Receive Date: 20231124
  Receipt Date: 20231124
  Transmission Date: 20240110
  Serious: Yes (Hospitalization)
  Sender: FDA-Public Use
  Company Number: JP-NBI-BS202300339

PATIENT
  Age: 9 Decade
  Sex: Female

DRUGS (6)
  1. PRAMIPEXOLE [Suspect]
     Active Substance: PRAMIPEXOLE
     Indication: Restless legs syndrome
     Route: 065
  2. PRAMIPEXOLE [Suspect]
     Active Substance: PRAMIPEXOLE
     Route: 065
  3. PRAMIPEXOLE [Suspect]
     Active Substance: PRAMIPEXOLE
     Route: 065
  4. METOCLOPRAMIDE [Suspect]
     Active Substance: METOCLOPRAMIDE
     Indication: Product used for unknown indication
     Route: 065
  5. ROTIGOTINE [Concomitant]
     Active Substance: ROTIGOTINE
     Indication: Restless legs syndrome
     Route: 065
  6. TRAMADOL HYDROCHLORIDE/ACETAMINOPHEN COMBINED DRUG [Concomitant]
     Indication: Product used for unknown indication
     Route: 065

REACTIONS (3)
  - Thoracic vertebral fracture [Unknown]
  - Restless leg augmentation syndrome [Recovering/Resolving]
  - Parkinsonism [Unknown]
